FAERS Safety Report 11525127 (Version 1)
Quarter: 2015Q3

REPORT INFORMATION
  Report Type: Spontaneous
  Country: GB (occurrence: GB)
  Receive Date: 20150918
  Receipt Date: 20150918
  Transmission Date: 20151125
  Serious: Yes (Disabling, Other)
  Sender: FDA-Public Use
  Company Number: GB-TEVA-592894ACC

PATIENT
  Age: 67 Year
  Sex: Male
  Weight: 75.29 kg

DRUGS (3)
  1. BISOPROLOL [Concomitant]
     Active Substance: BISOPROLOL
  2. WARFARIN [Suspect]
     Active Substance: WARFARIN
     Indication: DEEP VEIN THROMBOSIS
     Dosage: AS DIRECTED
     Route: 048
     Dates: start: 201107, end: 2013
  3. SINTROM [Suspect]
     Active Substance: ACENOCOUMAROL
     Dates: start: 2013

REACTIONS (3)
  - Exercise tolerance decreased [Unknown]
  - Myalgia [Not Recovered/Not Resolved]
  - Gait disturbance [Unknown]

NARRATIVE: CASE EVENT DATE: 201107
